FAERS Safety Report 10990959 (Version 1)
Quarter: 2015Q2

REPORT INFORMATION
  Report Type: Spontaneous
  Country: JP (occurrence: JP)
  Receive Date: 20150406
  Receipt Date: 20150406
  Transmission Date: 20150821
  Serious: No
  Sender: FDA-Public Use
  Company Number: JP-ELI_LILLY_AND_COMPANY-JP201503009613

PATIENT
  Age: 60 Year
  Sex: Female

DRUGS (3)
  1. DEPAS [Suspect]
     Active Substance: ETIZOLAM
     Indication: DEPRESSION
     Dosage: UNK
     Route: 048
     Dates: start: 20150211
  2. ROHYPNOL [Suspect]
     Active Substance: FLUNITRAZEPAM
     Indication: DEPRESSION
     Dosage: UNK
     Route: 048
     Dates: start: 20150211
  3. CYMBALTA [Suspect]
     Active Substance: DULOXETINE HYDROCHLORIDE
     Indication: DEPRESSION
     Dosage: 60 MG, QD
     Route: 048
     Dates: start: 20150211

REACTIONS (2)
  - Malaise [Unknown]
  - Hepatic function abnormal [Unknown]

NARRATIVE: CASE EVENT DATE: 20150325
